FAERS Safety Report 14256516 (Version 1)
Quarter: 2017Q4

REPORT INFORMATION
  Report Type: Spontaneous
  Country: US (occurrence: US)
  Receive Date: 20171206
  Receipt Date: 20171206
  Transmission Date: 20180321
  Serious: No
  Sender: FDA-Public Use
  Company Number: US-PFIZER INC-2017520872

PATIENT
  Age: 66 Year
  Sex: Female

DRUGS (4)
  1. CODEINE [Suspect]
     Active Substance: CODEINE
     Dosage: UNK
  2. IODINE. [Suspect]
     Active Substance: IODINE
     Dosage: UNK
  3. LIPITOR [Suspect]
     Active Substance: ATORVASTATIN CALCIUM
     Dosage: UNK
  4. LYRICA [Suspect]
     Active Substance: PREGABALIN
     Dosage: UNK

REACTIONS (1)
  - Drug hypersensitivity [Unknown]
